FAERS Safety Report 18875020 (Version 1)
Quarter: 2021Q1

REPORT INFORMATION
  Report Type: Spontaneous
  Country: CN (occurrence: CN)
  Receive Date: 20210210
  Receipt Date: 20210210
  Transmission Date: 20210420
  Serious: Yes (Other)
  Sender: FDA-Public Use
  Company Number: CN-BAYER-2021-057312

PATIENT
  Age: 89 Year
  Sex: Male
  Weight: 70 kg

DRUGS (7)
  1. AVELOX [Suspect]
     Active Substance: MOXIFLOXACIN HYDROCHLORIDE
     Indication: INFECTION
     Dosage: UNK
     Route: 048
     Dates: start: 20200914, end: 20200916
  2. BENAZEPRIL [Concomitant]
     Active Substance: BENAZEPRIL HYDROCHLORIDE
  3. AVELOX [Suspect]
     Active Substance: MOXIFLOXACIN HYDROCHLORIDE
     Dosage: UNK
     Route: 041
     Dates: start: 20200901, end: 20200914
  4. DIGOXIN. [Concomitant]
     Active Substance: DIGOXIN
  5. VASOREL [Concomitant]
     Active Substance: TRIMETAZIDINE DIHYDROCHLORIDE
  6. AVELOX [Suspect]
     Active Substance: MOXIFLOXACIN HYDROCHLORIDE
     Indication: INFECTION
     Dosage: 1 DF, QD
     Route: 048
     Dates: start: 20210108, end: 20210112
  7. THEOPHYLLINE [Concomitant]
     Active Substance: THEOPHYLLINE ANHYDROUS

REACTIONS (8)
  - Nervous system disorder [Recovered/Resolved]
  - Dysphoria [Recovered/Resolved]
  - Confusional state [Recovered/Resolved]
  - Persecutory delusion [Recovered/Resolved]
  - Insomnia [Recovered/Resolved]
  - Mental disorder [None]
  - Hallucination [Recovered/Resolved]
  - Agitation [Recovered/Resolved]

NARRATIVE: CASE EVENT DATE: 202009
